FAERS Safety Report 20291185 (Version 1)
Quarter: 2022Q1

REPORT INFORMATION
  Report Type: Spontaneous
  Country: US (occurrence: US)
  Receive Date: 20220104
  Receipt Date: 20220104
  Transmission Date: 20220423
  Serious: No
  Sender: FDA-Public Use
  Company Number: US-TEVA-2021-US-1988998

PATIENT
  Age: 73 Year
  Sex: Female
  Weight: 53.1 kg

DRUGS (3)
  1. MORPHINE SULFATE [Suspect]
     Active Substance: MORPHINE SULFATE
     Indication: Product used for unknown indication
     Route: 065
     Dates: start: 2021
  2. TYVASO [Suspect]
     Active Substance: TREPROSTINIL
     Indication: Pulmonary arterial hypertension
     Dosage: 18-72 G (3-12 BREATHS), FOUR TIMES A DAY (QID) VIA INHALATION (IH) ROUTE.
     Route: 065
     Dates: start: 20210914
  3. ADCIRCA [Concomitant]
     Active Substance: TADALAFIL

REACTIONS (5)
  - Bedridden [Unknown]
  - Fall [Recovered/Resolved with Sequelae]
  - Muscular weakness [Unknown]
  - Gait inability [Unknown]
  - Hypersomnia [Unknown]

NARRATIVE: CASE EVENT DATE: 20210101
